FAERS Safety Report 5754390-8 (Version None)
Quarter: 2008Q2

REPORT INFORMATION
  Report Type: 
  Country: None (occurrence: None)
  Receive Date: 20080530
  Receipt Date: 20080519
  Transmission Date: 20081010
  Serious: Yes (Other)
  Sender: FDA-Public Use
  Company Number: FR-PFIZER INC-2008035350

PATIENT
  Sex: Male
  Weight: 88 kg

DRUGS (3)
  1. LYRICA [Suspect]
     Indication: POST HERPETIC NEURALGIA
  2. ANDROCUR [Concomitant]
     Indication: PROSTATE CANCER
  3. LEUPROLIDE ACETATE [Concomitant]
     Indication: PROSTATE CANCER

REACTIONS (5)
  - ALTERED STATE OF CONSCIOUSNESS [None]
  - ASTHENIA [None]
  - FALL [None]
  - SOMNOLENCE [None]
  - URINARY INCONTINENCE [None]
